FAERS Safety Report 20005047 (Version 1)
Quarter: 2021Q4

REPORT INFORMATION
  Report Type: Spontaneous
  Country: US (occurrence: US)
  Receive Date: 20211027
  Receipt Date: 20211027
  Transmission Date: 20220303
  Serious: Yes (unspecified)
  Sender: FDA-Public Use
  Company Number: None

PATIENT
  Age: 63 Year
  Sex: Female
  Weight: 71.1 kg

DRUGS (13)
  1. BRIMONIDINE [Suspect]
     Active Substance: BRIMONIDINE TARTRATE
     Indication: Postoperative care
     Route: 047
     Dates: start: 20210908, end: 20211009
  2. BRIMONIDINE [Suspect]
     Active Substance: BRIMONIDINE TARTRATE
     Indication: Retinopexy
  3. TRAVASTAN Z EYE DROPS [Concomitant]
  4. JARRO-DOPHILUS PLUS [Concomitant]
  5. VITAMINS [Concomitant]
     Active Substance: VITAMINS
  6. VITAMIN C [Concomitant]
     Active Substance: ASCORBIC ACID
  7. NATURE^S WAY SAMBUCUS GUMMIES [Concomitant]
  8. HERBALS\TURMERIC [Concomitant]
     Active Substance: HERBALS\TURMERIC
  9. NATURE^S BOUNTY CRANBERRY [Concomitant]
  10. HYALURONIC ACID COMPLEX [Concomitant]
  11. FLAXSEED [Concomitant]
     Active Substance: FLAX SEED
  12. NATURE MADE MAGNESIUM CITRATE [Concomitant]
  13. MOUNTAIN AIR TEAPILLS [Concomitant]

REACTIONS (3)
  - Drug hypersensitivity [None]
  - Intraocular pressure increased [None]
  - Conjunctivitis [None]

NARRATIVE: CASE EVENT DATE: 20210924
